FAERS Safety Report 7773282-6 (Version None)
Quarter: 2011Q3

REPORT INFORMATION
  Report Type: 
  Country: None (occurrence: None)
  Receive Date: 20110922
  Receipt Date: 20110914
  Transmission Date: 20111222
  Serious: Yes (Other)
  Sender: FDA-Public Use
  Company Number: US-SANOFI-AVENTIS-2011SA061615

PATIENT
  Age: 84 Year
  Sex: Male

DRUGS (21)
  1. WARFARIN SODIUM [Suspect]
     Route: 065
     Dates: start: 20110101
  2. NICOTINE [Concomitant]
  3. NITROGLYCERIN [Concomitant]
  4. DOCUSATE [Concomitant]
  5. ROPINIROLE [Concomitant]
  6. SUCRALFATE [Concomitant]
  7. ASPIRIN [Concomitant]
  8. SIMVASTATIN [Concomitant]
  9. CELEXA [Concomitant]
  10. MIRALAX [Concomitant]
  11. TERAZOSIN HCL [Concomitant]
  12. PLAVIX [Suspect]
     Route: 065
     Dates: start: 20110601
  13. COUMADIN [Suspect]
     Indication: ATRIAL FIBRILLATION
     Route: 065
     Dates: end: 20110401
  14. VICODIN [Concomitant]
  15. OXYCODONE [Concomitant]
  16. SENNA [Concomitant]
  17. MIRTAZAPINE [Concomitant]
  18. LISINOPRIL [Concomitant]
  19. METOPROLOL [Concomitant]
  20. PANTOPRAZOLE [Concomitant]
  21. MAGNESIUM HYDROXIDE TAB [Concomitant]

REACTIONS (3)
  - HEAD AND NECK CANCER [None]
  - OROPHARYNGEAL PAIN [None]
  - DYSPHAGIA [None]
